FAERS Safety Report 11289295 (Version 1)
Quarter: 2015Q3

REPORT INFORMATION
  Report Type: Spontaneous
  Country: US (occurrence: US)
  Receive Date: 20150721
  Receipt Date: 20150721
  Transmission Date: 20151125
  Serious: No
  Sender: FDA-Public Use
  Company Number: US-GLAXOSMITHKLINE-US2015102792

PATIENT
  Sex: Female

DRUGS (2)
  1. ASPIRIN (BABY) [Concomitant]
     Active Substance: ASPIRIN
  2. VENTOLIN HFA [Suspect]
     Active Substance: ALBUTEROL SULFATE
     Indication: CHRONIC OBSTRUCTIVE PULMONARY DISEASE
     Route: 055
     Dates: start: 2010

REACTIONS (3)
  - Palpitations [Not Recovered/Not Resolved]
  - Drug ineffective [Recovered/Resolved]
  - Dysphonia [Not Recovered/Not Resolved]
